FAERS Safety Report 7221778-8 (Version None)
Quarter: 2011Q1

REPORT INFORMATION
  Report Type: 
  Country: None (occurrence: None)
  Receive Date: 20110112
  Receipt Date: 20101230
  Transmission Date: 20110831
  Serious: Yes (Other)
  Sender: FDA-Public Use
  Company Number: DE-ELI_LILLY_AND_COMPANY-DE201101000013

PATIENT
  Sex: Female

DRUGS (3)
  1. THELIN [Concomitant]
     Dates: start: 20100918, end: 20101213
  2. ADCIRCA [Suspect]
     Indication: SCLERODERMA
     Dosage: 40 MG, DAILY (1/D)
     Route: 048
     Dates: start: 20101213, end: 20101213
  3. TRACLEER [Concomitant]
     Dates: start: 20101214

REACTIONS (2)
  - OFF LABEL USE [None]
  - SYNCOPE [None]
